FAERS Safety Report 7411333-9 (Version None)
Quarter: 2011Q2

REPORT INFORMATION
  Report Type: 
  Country: None (occurrence: None)
  Receive Date: 20110413
  Receipt Date: 20110314
  Transmission Date: 20111010
  Serious: No
  Sender: FDA-Public Use
  Company Number: ES-SANOFI-AVENTIS-2011SA016756

PATIENT
  Age: 28 Year
  Sex: Female

DRUGS (7)
  1. ZAMENE [Concomitant]
     Route: 065
     Dates: start: 20101103
  2. ARAVA [Suspect]
     Indication: RHEUMATOID ARTHRITIS
     Route: 048
     Dates: start: 20071201, end: 20110101
  3. COLECALCIFEROL [Concomitant]
     Route: 065
     Dates: start: 20090201
  4. TARDYFERON /GFR/ [Concomitant]
     Route: 065
  5. OMEPRAZOLE [Concomitant]
     Route: 065
     Dates: start: 20090201
  6. YASMIN [Concomitant]
     Route: 065
     Dates: start: 20090201
  7. ATRISCAL [Concomitant]
     Indication: PAIN
     Route: 065
     Dates: start: 20090201

REACTIONS (1)
  - DRUG EXPOSURE DURING PREGNANCY [None]
